FAERS Safety Report 12620769 (Version 3)
Quarter: 2017Q1

REPORT INFORMATION
  Report Type: Spontaneous
  Country: US (occurrence: US)
  Receive Date: 20160804
  Receipt Date: 20170213
  Transmission Date: 20170428
  Serious: Yes (Other)
  Sender: FDA-Public Use
  Company Number: US-HORIZON-RAV-0147-2016

PATIENT
  Age: 30 Year
  Sex: Male

DRUGS (5)
  1. RAVICTI [Suspect]
     Active Substance: GLYCEROL PHENYLBUTYRATE
     Indication: ORNITHINE TRANSCARBAMOYLASE DEFICIENCY
     Dosage: 5.8 ML TID
  2. CYCLINEX [Concomitant]
  3. PRO-PHREE [Concomitant]
  4. MULTIVITAMIN [Concomitant]
     Active Substance: VITAMINS
     Dosage: DAILY
  5. IRON [Concomitant]
     Active Substance: IRON
     Dosage: DAILY

REACTIONS (2)
  - Hyperammonaemia [Recovered/Resolved]
  - Vomiting [Recovered/Resolved]
